FAERS Safety Report 23737582 (Version 3)
Quarter: 2024Q2

REPORT INFORMATION
  Report Type: Report from Study
  Country: CA (occurrence: CA)
  Receive Date: 20240412
  Receipt Date: 20240501
  Transmission Date: 20240716
  Serious: Yes (Other)
  Sender: FDA-Public Use
  Company Number: CA-JNJFOC-20230239377

PATIENT
  Age: 63 Year
  Sex: Male

DRUGS (4)
  1. TREMFYA [Suspect]
     Active Substance: GUSELKUMAB
     Indication: Psoriasis
     Route: 058
     Dates: start: 20230118
  2. TREMFYA [Suspect]
     Active Substance: GUSELKUMAB
     Indication: Colitis
     Route: 058
     Dates: start: 20230118
  3. TREMFYA [Suspect]
     Active Substance: GUSELKUMAB
     Indication: Colitis ulcerative
     Route: 058
     Dates: start: 20230728
  4. TREMFYA [Suspect]
     Active Substance: GUSELKUMAB
     Route: 058
     Dates: start: 20240208

REACTIONS (9)
  - Lower respiratory tract infection [Unknown]
  - Sinusitis [Not Recovered/Not Resolved]
  - Colitis [Unknown]
  - Off label use [Unknown]
  - Skin hypertrophy [Recovering/Resolving]
  - Toothache [Unknown]
  - Injection site pain [Recovered/Resolved]
  - Injection site bruising [Recovered/Resolved]
  - Product dose omission issue [Unknown]

NARRATIVE: CASE EVENT DATE: 20230207
